FAERS Safety Report 9897675 (Version 4)
Quarter: 2014Q1

REPORT INFORMATION
  Report Type: Report from Study
  Country: US (occurrence: US)
  Receive Date: 20140214
  Receipt Date: 20140314
  Transmission Date: 20141002
  Serious: Yes (Other)
  Sender: FDA-Public Use
  Company Number: US-ACTELION-A-NJ2014-94287

PATIENT
  Age: 61 Year
  Sex: Female

DRUGS (4)
  1. VELETRI [Suspect]
     Indication: PULMONARY ARTERIAL HYPERTENSION
     Dosage: 12 NG/KG, PER MIN
     Route: 041
     Dates: start: 20140123
  2. VELETRI [Suspect]
     Dosage: 8 NG/KG, PER MIN
     Route: 041
     Dates: start: 20140114
  3. WARFARIN [Concomitant]
  4. COUMADIN [Concomitant]

REACTIONS (13)
  - Thrombosis [Unknown]
  - Oedema peripheral [Unknown]
  - Pain in extremity [Unknown]
  - Oedema [Unknown]
  - Dermatitis contact [Unknown]
  - Erythema [Unknown]
  - Blister [Unknown]
  - Limb discomfort [Unknown]
  - Flushing [Unknown]
  - Catheter site rash [Unknown]
  - Catheter site erythema [Recovering/Resolving]
  - Catheter site discharge [Unknown]
  - Allergy to chemicals [Unknown]
